FAERS Safety Report 19995499 (Version 1)
Quarter: 2021Q4

REPORT INFORMATION
  Report Type: Spontaneous
  Country: US (occurrence: US)
  Receive Date: 20211026
  Receipt Date: 20211026
  Transmission Date: 20220304
  Serious: Yes (Hospitalization)
  Sender: FDA-Public Use
  Company Number: None

PATIENT
  Sex: Female

DRUGS (1)
  1. VOTRIENT [Suspect]
     Active Substance: PAZOPANIB HYDROCHLORIDE
     Indication: Soft tissue sarcoma
     Dosage: TAKE 3 TABLETS (600 MG) BY MOUTH ONCE A DAY.  TAKE ON AN EMPTY STOMACH, 1 HOUR BEFOR OR 2 HOURS AFTE
     Route: 048
     Dates: start: 20210929

REACTIONS (1)
  - Intentional dose omission [None]
